FAERS Safety Report 4711441-7 (Version None)
Quarter: 2005Q3

REPORT INFORMATION
  Report Type: 
  Country: None (occurrence: None)
  Receive Date: 20050711
  Receipt Date: 20050628
  Transmission Date: 20060218
  Serious: Yes (Disabling, Other)
  Sender: FDA-Public Use
  Company Number: 2005095141

PATIENT
  Age: 61 Year
  Sex: Male
  Weight: 105.2345 kg

DRUGS (4)
  1. XANAX [Suspect]
     Indication: ANXIETY
     Dosage: (0.5 MG, THREE TIMES ADAY AS NEEDED), ORAL
     Route: 048
     Dates: start: 20000101
  2. ALCOHOL (ETHANOL) [Suspect]
     Indication: ILL-DEFINED DISORDER
     Dosage: ORAL
     Route: 048
  3. DARVOCET [Suspect]
     Indication: ARTHRITIS
  4. DARVOCET [Suspect]
     Indication: NEUROPATHY

REACTIONS (26)
  - ABNORMAL DREAMS [None]
  - ACCIDENT [None]
  - AMNESIA [None]
  - BLOOD ALCOHOL INCREASED [None]
  - CONDITION AGGRAVATED [None]
  - DEAFNESS [None]
  - DIABETES MELLITUS [None]
  - DRUG INTERACTION [None]
  - FALL [None]
  - FEAR [None]
  - FLASHBACK [None]
  - GAIT DISTURBANCE [None]
  - GUN SHOT WOUND [None]
  - HALLUCINATION [None]
  - HAND FRACTURE [None]
  - HOMICIDAL IDEATION [None]
  - HOSTILITY [None]
  - INAPPROPRIATE SCHEDULE OF DRUG ADMINISTRATION [None]
  - INJURY [None]
  - LIMB CRUSHING INJURY [None]
  - LIMB DEFORMITY [None]
  - LOSS OF CONSCIOUSNESS [None]
  - NEUROPATHY [None]
  - SOMNOLENCE [None]
  - SUICIDAL IDEATION [None]
  - WEIGHT INCREASED [None]
